FAERS Safety Report 22944964 (Version 8)
Quarter: 2025Q2

REPORT INFORMATION
  Report Type: Spontaneous
  Country: US (occurrence: US)
  Receive Date: 20230914
  Receipt Date: 20250506
  Transmission Date: 20250717
  Serious: Yes (Other)
  Sender: PFIZER
  Company Number: US-PFIZER INC-PV202300153620

PATIENT
  Age: 73 Year
  Sex: Female
  Weight: 59.42 kg

DRUGS (20)
  1. IBRANCE [Suspect]
     Active Substance: PALBOCICLIB
     Indication: Breast cancer female
     Dates: start: 201805
  2. IBRANCE [Suspect]
     Active Substance: PALBOCICLIB
     Indication: Breast cancer metastatic
     Route: 048
     Dates: start: 20230727
  3. IBRANCE [Suspect]
     Active Substance: PALBOCICLIB
     Route: 048
  4. ADVIL [Concomitant]
     Active Substance: IBUPROFEN
     Route: 048
  5. AIRBORNE [Concomitant]
     Active Substance: HERBALS\MINERALS\VITAMINS
  6. ALKA-SELTZER [Concomitant]
     Active Substance: ANHYDROUS CITRIC ACID\ASPIRIN\SODIUM BICARBONATE
  7. CARISOPRODOL [Concomitant]
     Active Substance: CARISOPRODOL
  8. ACETAMINOPHEN\CAFFEINE [Concomitant]
     Active Substance: ACETAMINOPHEN\CAFFEINE
  9. FASLODEX [Concomitant]
     Active Substance: FULVESTRANT
  10. FASLODEX [Concomitant]
     Active Substance: FULVESTRANT
     Dosage: TWO SHOTS OF FASLODEX EVERY MONTH
  11. FLONASE ALLERGY RELIEF [Concomitant]
     Active Substance: FLUTICASONE PROPIONATE
  12. GUAIFENESIN [Concomitant]
     Active Substance: GUAIFENESIN
  13. HYOSCYAMINE [Concomitant]
     Active Substance: HYOSCYAMINE
  14. LETROZOLE [Concomitant]
     Active Substance: LETROZOLE
  15. PEPCID [Concomitant]
     Active Substance: FAMOTIDINE
  16. PHAZYME [Concomitant]
     Active Substance: DIMETHICONE 410
  17. TUMS [Concomitant]
     Active Substance: CALCIUM CARBONATE
  18. TYLENOL [Concomitant]
     Active Substance: ACETAMINOPHEN
  19. VITAMIN D3 [Concomitant]
     Active Substance: CHOLECALCIFEROL
  20. ZOMETA [Concomitant]
     Active Substance: ZOLEDRONIC ACID

REACTIONS (2)
  - Cardiac flutter [Unknown]
  - Full blood count decreased [Not Recovered/Not Resolved]
